FAERS Safety Report 17018364 (Version 1)
Quarter: 2019Q4

REPORT INFORMATION
  Report Type: Report from Study
  Country: US (occurrence: US)
  Receive Date: 20191111
  Receipt Date: 20191111
  Transmission Date: 20200122
  Serious: No
  Sender: FDA-Public Use
  Company Number: NVSC2019US026347

PATIENT
  Sex: Female
  Weight: 116.37 kg

DRUGS (1)
  1. ILARIS [Suspect]
     Active Substance: CANAKINUMAB
     Indication: PRODUCT USED FOR UNKNOWN INDICATION
     Dosage: 150 MG, EVERY 21 DAYS
     Route: 058

REACTIONS (3)
  - Inappropriate schedule of product administration [Unknown]
  - Pain [Unknown]
  - Rash [Unknown]
